FAERS Safety Report 6416794-X (Version None)
Quarter: 2009Q4

REPORT INFORMATION
  Report Type: 
  Country: None (occurrence: None)
  Receive Date: 20091022
  Receipt Date: 20080602
  Transmission Date: 20100525
  Serious: Yes (Hospitalization)
  Sender: FDA-Public Use
  Company Number: 2008AP001338

PATIENT
  Age: 86 Year
  Sex: Male

DRUGS (20)
  1. LISINOPRIL [Suspect]
     Dosage: 2.5 MG; QD
  2. FLUNISOLIDE [Suspect]
  3. SERTRALINE HCL [Suspect]
     Dosage: 75;MG;QD
  4. CLOPIDOGREL BISULFATE [Suspect]
  5. ASPIRIN [Suspect]
  6. DONEPEZIL HCL [Suspect]
     Dosage: 10 MG
  7. CYPROHEPTADINE [Suspect]
     Dosage: 4 MG; QD
  8. FAMOTIDINE [Suspect]
     Dosage: 40 MG; QD
  9. FUROSEMIDE [Suspect]
     Dosage: 20 MG; TIW
  10. INSULIN ISOPHANE PORCINE [Suspect]
     Dosage: 15 IU;QD
  11. ALBUTEROL SULFATE AND IPRATROPIUM BROMIDE [Suspect]
     Dosage: PRN
  12. MOMETASONE FUROATE [Suspect]
     Dosage: INH
  13. ISOSORBIDE MONONITRATE [Suspect]
     Dosage: 15 MG; QD
  14. LEVETIRACETAM [Suspect]
     Indication: CONVULSION
     Dosage: 1000MG; BID,    500 MG; BID
  15. MAGNESIUM GLUCONATE [Suspect]
     Dosage: 500 MG; QD
  16. METOCLOPRAMIDE [Suspect]
     Dosage: 10 MG; QID
  17. METOPROLOL [Suspect]
     Dosage: 75 MG; QD
  18. MODAFINIL [Suspect]
     Indication: APATHY
     Dosage: 200 MG
  19. GLYCERYL TRINITRATE [Suspect]
     Dosage: 0.4 MG; PRN
  20. SIMVASTATIN [Suspect]
     Dosage: 40 MG; HS

REACTIONS (4)
  - ACUTE MYOCARDIAL INFARCTION [None]
  - DECREASED APPETITE [None]
  - DEHYDRATION [None]
  - NAUSEA [None]
